FAERS Safety Report 16385009 (Version 1)
Quarter: 2019Q2

REPORT INFORMATION
  Report Type: Spontaneous
  Country: DE (occurrence: DE)
  Receive Date: 20190603
  Receipt Date: 20190603
  Transmission Date: 20190711
  Serious: Yes (Other)
  Sender: FDA-Public Use
  Company Number: DE-MYLANLABS-2019M1051210

PATIENT
  Age: 15 Year
  Sex: Male
  Weight: 70 kg

DRUGS (3)
  1. AKINETON [Concomitant]
     Active Substance: BIPERIDEN HYDROCHLORIDE
     Indication: DELUSIONAL DISORDER, PERSECUTORY TYPE
     Dosage: 8 MILLIGRAM, QD
     Route: 048
  2. HALDOL [Concomitant]
     Active Substance: HALOPERIDOL
     Indication: DELUSIONAL DISORDER, PERSECUTORY TYPE
     Dosage: 4 MILLIGRAM, QD
     Route: 048
     Dates: end: 200406
  3. LEPONEX [Suspect]
     Active Substance: CLOZAPINE
     Indication: DELUSIONAL DISORDER, PERSECUTORY TYPE
     Dosage: 75 MILLIGRAM, QD
     Route: 048
     Dates: start: 200404, end: 20040616

REACTIONS (2)
  - Epilepsy [Recovered/Resolved]
  - Product use issue [Unknown]

NARRATIVE: CASE EVENT DATE: 200404
